FAERS Safety Report 7788422-2 (Version None)
Quarter: 2011Q3

REPORT INFORMATION
  Report Type: 
  Country: None (occurrence: None)
  Receive Date: 20110930
  Receipt Date: 20110926
  Transmission Date: 20111222
  Serious: Yes (Hospitalization)
  Sender: FDA-Public Use
  Company Number: US-AMGEN-USACT2011049705

PATIENT
  Age: 68 Year
  Sex: Male

DRUGS (5)
  1. BLINDED PLACEBO [Suspect]
     Indication: BREAST CANCER
     Dates: start: 20110620
  2. BLINDED DENOSUMAB [Suspect]
     Indication: BREAST CANCER
     Dates: start: 20110620
  3. DOCETAXEL [Concomitant]
     Dosage: UNK
     Dates: start: 20110601
  4. CYCLOPHOSPHAMIDE [Concomitant]
     Dosage: UNK
     Dates: start: 20110601
  5. DOXORUBICIN HCL [Concomitant]
     Dosage: UNK
     Dates: start: 20110601

REACTIONS (4)
  - HYPOTENSION [None]
  - FATIGUE [None]
  - ANAEMIA [None]
  - PANCYTOPENIA [None]
